FAERS Safety Report 10551272 (Version 3)
Quarter: 2014Q4

REPORT INFORMATION
  Report Type: Spontaneous
  Country: FR (occurrence: FR)
  Receive Date: 20141029
  Receipt Date: 20141201
  Transmission Date: 20150529
  Serious: Yes (Hospitalization)
  Sender: FDA-Public Use
  Company Number: FR-SA-2014SA144817

PATIENT
  Age: 31 Year
  Sex: Female

DRUGS (12)
  1. EVOLTRA [Suspect]
     Active Substance: CLOFARABINE
     Indication: ACUTE LYMPHOCYTIC LEUKAEMIA
     Route: 042
     Dates: start: 20140827, end: 20140831
  2. THYMOGLOBULINE [Suspect]
     Active Substance: LAPINE T-LYMPHOCYTE IMMUNE GLOBULIN
     Indication: ACUTE LYMPHOCYTIC LEUKAEMIA
     Route: 042
     Dates: start: 20140906, end: 20140907
  3. CANCIDAS [Concomitant]
     Active Substance: CASPOFUNGIN ACETATE
  4. ENDOXAN [Suspect]
     Active Substance: CYCLOPHOSPHAMIDE
     Indication: ACUTE LYMPHOCYTIC LEUKAEMIA
     Route: 042
     Dates: start: 20140904, end: 20140904
  5. ZYVOXID [Concomitant]
     Active Substance: LINEZOLID
  6. FLAGYL [Concomitant]
     Active Substance: METRONIDAZOLE\METRONIDAZOLE HYDROCHLORIDE
  7. BUSILVEX [Suspect]
     Active Substance: BUSULFAN
     Indication: ACUTE LYMPHOCYTIC LEUKAEMIA
     Route: 042
     Dates: start: 20140905, end: 20140906
  8. ARACYTINE [Suspect]
     Active Substance: CYTARABINE
     Indication: ACUTE LYMPHOCYTIC LEUKAEMIA
     Route: 042
     Dates: start: 20140827, end: 20140831
  9. SANDIMMUNE [Concomitant]
     Active Substance: CYCLOSPORINE
  10. CYCLOSPORINE. [Concomitant]
     Active Substance: CYCLOSPORINE
  11. ZOVIRAX [Concomitant]
     Active Substance: ACYCLOVIR
  12. FORTUM [Concomitant]
     Active Substance: CEFTAZIDIME

REACTIONS (3)
  - Hepatic enzyme increased [Not Recovered/Not Resolved]
  - Hyperbilirubinaemia [Not Recovered/Not Resolved]
  - Off label use [Unknown]

NARRATIVE: CASE EVENT DATE: 20140924
